FAERS Safety Report 6419709-3 (Version None)
Quarter: 2009Q4

REPORT INFORMATION
  Report Type: 
  Country: None (occurrence: None)
  Receive Date: 20091029
  Receipt Date: 20091019
  Transmission Date: 20100525
  Serious: Yes (Hospitalization)
  Sender: FDA-Public Use
  Company Number: D0063255A

PATIENT
  Age: 26 Year
  Sex: Female
  Weight: 53 kg

DRUGS (12)
  1. CEFUROXIME [Suspect]
     Dosage: 1.5G TWICE PER DAY
     Route: 042
     Dates: start: 20090910, end: 20090914
  2. CEFUROXIM AXETIL [Suspect]
     Dosage: 250MG TWICE PER DAY
     Route: 048
     Dates: start: 20090831, end: 20090905
  3. CIPRO [Suspect]
     Indication: INFLAMMATORY BOWEL DISEASE
     Dosage: 400MG TWICE PER DAY
     Route: 042
     Dates: start: 20090919, end: 20090922
  4. CIPRO [Suspect]
     Dosage: 500MG THREE TIMES PER DAY
     Route: 048
     Dates: start: 20090923, end: 20090923
  5. CLINDA-SAAR [Suspect]
     Dosage: 600MG TWICE PER DAY
     Route: 042
     Dates: start: 20090907, end: 20090909
  6. GENTAMICIN [Suspect]
     Dosage: 160MG SINGLE DOSE
     Route: 042
     Dates: start: 20090907, end: 20090907
  7. HYLAK [Concomitant]
     Indication: INFLAMMATORY BOWEL DISEASE
     Dosage: 2ML THREE TIMES PER DAY
     Route: 048
     Dates: start: 20090919, end: 20090926
  8. METRONIDAZOL IV [Concomitant]
     Indication: LYMPHADENITIS
     Dosage: 500MG TWICE PER DAY
     Route: 042
     Dates: start: 20090907, end: 20090914
  9. METRONIDAZOL IV [Concomitant]
     Indication: INFLAMMATORY BOWEL DISEASE
     Dosage: 500MG THREE TIMES PER DAY
     Route: 042
     Dates: start: 20090919, end: 20090922
  10. METRONIDAZOL [Concomitant]
     Indication: INFLAMMATORY BOWEL DISEASE
     Dosage: 500MG THREE TIMES PER DAY
     Route: 048
     Dates: start: 20090923, end: 20090923
  11. PANTOPRAZOLE SODIUM [Concomitant]
     Indication: PROPHYLAXIS
     Dosage: 20MG PER DAY
     Route: 048
     Dates: start: 20090919
  12. SALOFALK [Concomitant]
     Indication: INFLAMMATORY BOWEL DISEASE
     Dosage: 1000MG THREE TIMES PER DAY
     Route: 048
     Dates: start: 20090919, end: 20090926

REACTIONS (6)
  - ABDOMINAL PAIN [None]
  - DIARRHOEA [None]
  - NAUSEA [None]
  - PSEUDOMEMBRANOUS COLITIS [None]
  - PYREXIA [None]
  - VOMITING [None]
